FAERS Safety Report 24784483 (Version 1)
Quarter: 2024Q4

REPORT INFORMATION
  Report Type: Spontaneous
  Country: US (occurrence: None)
  Receive Date: 20241224
  Receipt Date: 20241224
  Transmission Date: 20250115
  Serious: No
  Sender: Public
  Company Number: None

PATIENT

DRUGS (1)
  1. PREDNISONE [Suspect]
     Active Substance: PREDNISONE

REACTIONS (6)
  - Headache [None]
  - Pruritus [None]
  - Rash [None]
  - Pain in extremity [None]
  - Paraesthesia [None]
  - Ear pain [None]
